FAERS Safety Report 8386848-X (Version None)
Quarter: 2012Q2

REPORT INFORMATION
  Report Type: 
  Country: None (occurrence: None)
  Receive Date: 20120525
  Receipt Date: 20120517
  Transmission Date: 20120825
  Serious: Yes (Hospitalization)
  Sender: FDA-Public Use
  Company Number: US-US-EMD SERONO, INC.-430002N07USA

PATIENT
  Sex: Female
  Weight: 63 kg

DRUGS (16)
  1. NOVANTRONE [Suspect]
     Route: 042
     Dates: start: 20031003, end: 20031003
  2. DITROPAN XL [Concomitant]
     Indication: PRODUCT USED FOR UNKNOWN INDICATION
  3. NOVANTRONE [Suspect]
     Route: 042
     Dates: start: 20030501, end: 20030501
  4. BACLOFEN [Concomitant]
     Indication: PRODUCT USED FOR UNKNOWN INDICATION
     Dates: start: 20031212
  5. LIPITOR [Concomitant]
     Indication: PRODUCT USED FOR UNKNOWN INDICATION
  6. VITAMIN TAB [Concomitant]
     Indication: PRODUCT USED FOR UNKNOWN INDICATION
  7. NOVANTRONE [Suspect]
     Indication: MULTIPLE SCLEROSIS
     Route: 042
     Dates: start: 20010412, end: 20010412
  8. NOVANTRONE [Suspect]
     Route: 042
     Dates: start: 20020613, end: 20020613
  9. TEGRETOL [Concomitant]
     Indication: PRODUCT USED FOR UNKNOWN INDICATION
     Dates: start: 20041101
  10. CRANBERRY [Concomitant]
     Indication: PRODUCT USED FOR UNKNOWN INDICATION
  11. PROBIOTIC [Concomitant]
     Indication: PRODUCT USED FOR UNKNOWN INDICATION
  12. NOVANTRONE [Suspect]
     Route: 042
     Dates: start: 20030117, end: 20030117
  13. NEURONTIN [Concomitant]
     Indication: PRODUCT USED FOR UNKNOWN INDICATION
     Dates: start: 20031212
  14. NOVANTRONE [Suspect]
     Route: 042
     Dates: start: 20020912, end: 20020912
  15. GLUCOSAMINE [Concomitant]
     Indication: PRODUCT USED FOR UNKNOWN INDICATION
  16. NOVANTRONE [Suspect]
     Route: 042
     Dates: start: 20010802, end: 20010802

REACTIONS (1)
  - ACUTE PROMYELOCYTIC LEUKAEMIA [None]
